FAERS Safety Report 11271257 (Version 1)
Quarter: 2015Q3

REPORT INFORMATION
  Report Type: Spontaneous
  Country: GB (occurrence: GB)
  Receive Date: 20150714
  Receipt Date: 20150714
  Transmission Date: 20151125
  Serious: Yes (Other)
  Sender: FDA-Public Use
  Company Number: ALCN2015GB004421

PATIENT
  Sex: Male

DRUGS (1)
  1. OPATANOL [Suspect]
     Active Substance: OLOPATADINE
     Indication: PRODUCT USED FOR UNKNOWN INDICATION
     Dosage: UNK
     Route: 047

REACTIONS (4)
  - Swelling face [Unknown]
  - Hypersensitivity [Unknown]
  - Dyspnoea [Unknown]
  - Pupillary disorder [Unknown]

NARRATIVE: CASE EVENT DATE: 20150702
